FAERS Safety Report 9362096 (Version 2)
Quarter: 2013Q3

REPORT INFORMATION
  Report Type: Spontaneous
  Country: FR (occurrence: FR)
  Receive Date: 20130621
  Receipt Date: 20130924
  Transmission Date: 20140515
  Serious: Yes (Other)
  Sender: FDA-Public Use
  Company Number: FR-ASTRAZENECA-2013SE46377

PATIENT
  Age: 19100 Day
  Sex: Male
  Weight: 72 kg

DRUGS (8)
  1. BRILIQUE [Suspect]
     Indication: MYOCARDIAL INFARCTION
     Route: 048
     Dates: start: 20121231
  2. MOPRAL [Suspect]
     Indication: MYOCARDIAL INFARCTION
     Route: 048
     Dates: start: 200804
  3. TAHOR [Suspect]
     Indication: MYOCARDIAL INFARCTION
     Route: 048
  4. TAHOR [Suspect]
     Indication: MYOCARDIAL INFARCTION
     Route: 048
     Dates: start: 20121231, end: 20130613
  5. AMLODIPINE [Concomitant]
     Indication: MYOCARDIAL INFARCTION
     Route: 048
     Dates: start: 20121231
  6. KARDEGIC [Concomitant]
     Indication: MYOCARDIAL INFARCTION
     Route: 048
     Dates: start: 20080630
  7. DETENSIEL [Concomitant]
     Indication: MYOCARDIAL INFARCTION
     Route: 048
     Dates: start: 200804
  8. TRINIPATCH [Concomitant]
     Indication: MYOCARDIAL INFARCTION
     Route: 062

REACTIONS (5)
  - Hepatic enzyme increased [Recovered/Resolved]
  - Vomiting [Recovered/Resolved]
  - Asthenia [Recovered/Resolved]
  - Decreased appetite [Recovered/Resolved]
  - Abdominal pain [Recovered/Resolved]
